FAERS Safety Report 10231517 (Version 1)
Quarter: 2014Q2

REPORT INFORMATION
  Report Type: Spontaneous
  Country: US (occurrence: US)
  Receive Date: 20140611
  Receipt Date: 20140611
  Transmission Date: 20141212
  Serious: No
  Sender: FDA-Public Use
  Company Number: US-MYLANLABS-2014S1000530

PATIENT
  Sex: Female

DRUGS (3)
  1. VALACYCLOVIR TABLETS [Suspect]
     Indication: GENITAL HERPES
     Route: 048
  2. BLOOD PRESSURE MEDICATION [Concomitant]
     Indication: BLOOD PRESSURE INCREASED
  3. DIURETIC [Concomitant]
     Indication: BLOOD PRESSURE INCREASED

REACTIONS (2)
  - Drug effect decreased [Recovering/Resolving]
  - Genital herpes [Recovering/Resolving]
